FAERS Safety Report 19195068 (Version 1)
Quarter: 2021Q2

REPORT INFORMATION
  Report Type: Spontaneous
  Country: CA (occurrence: CA)
  Receive Date: 20210429
  Receipt Date: 20210429
  Transmission Date: 20210717
  Serious: Yes (Hospitalization, Other)
  Sender: FDA-Public Use
  Company Number: CA-TEVA-2020-CA-1817177

PATIENT
  Age: 70 Year
  Sex: Female

DRUGS (29)
  1. AVELOX [Suspect]
     Active Substance: MOXIFLOXACIN HYDROCHLORIDE
     Dosage: 400 MILLIGRAM DAILY;
  2. MELATONIN [Concomitant]
     Active Substance: MELATONIN
  3. TYLENOL [Concomitant]
     Active Substance: ACETAMINOPHEN
  4. ASA [Concomitant]
     Active Substance: ASPIRIN
  5. OSELTAMIVIR [Concomitant]
     Active Substance: OSELTAMIVIR
  6. POLYETHYLENE GLYCOL 3350. [Concomitant]
     Active Substance: POLYETHYLENE GLYCOL 3350
  7. CEFTRIAXONE FOR INJECION USP [Suspect]
     Active Substance: CEFTRIAXONE
     Dosage: 1 GRAM DAILY;
     Route: 042
  8. LANSOPRAZOLE. [Concomitant]
     Active Substance: LANSOPRAZOLE
  9. MACROGOL 3350 [Concomitant]
     Active Substance: POLYETHYLENE GLYCOL 3350
  10. MOXIFLOXACIN HCL SANDOZ [Suspect]
     Active Substance: MOXIFLOXACIN
     Indication: PRODUCT USED FOR UNKNOWN INDICATION
     Dosage: 400 MILLIGRAM DAILY;
     Route: 065
  11. LEVETIRACETAM. [Concomitant]
     Active Substance: LEVETIRACETAM
  12. METFORMIN [Concomitant]
     Active Substance: METFORMIN HYDROCHLORIDE
  13. PANTOLOC /01263204/ [Concomitant]
     Active Substance: PANTOPRAZOLE SODIUM
  14. POTASSIUM CITRATE EFFER [Concomitant]
  15. QUETIAPINE. [Concomitant]
     Active Substance: QUETIAPINE
  16. AZITHROMYCIN ANHYDROUS. [Suspect]
     Active Substance: AZITHROMYCIN ANHYDROUS
     Indication: PRODUCT USED FOR UNKNOWN INDICATION
     Dosage: 500 MILLIGRAM DAILY;
     Route: 048
  17. CEFTRIAXONE FOR INJECION USP [Suspect]
     Active Substance: CEFTRIAXONE
     Indication: PRODUCT USED FOR UNKNOWN INDICATION
     Dosage: 1 GRAM DAILY;
     Route: 042
  18. SANDOZ AZITHROMYCIN [Suspect]
     Active Substance: AZITHROMYCIN
     Dosage: 500 MILLIGRAM DAILY;
     Route: 048
  19. TICAGRELOR. [Concomitant]
     Active Substance: TICAGRELOR
  20. DALTEPARIN [Concomitant]
     Active Substance: DALTEPARIN
  21. INSULIN ASPART [Concomitant]
     Active Substance: INSULIN ASPART
  22. VALPROIC ACID. [Concomitant]
     Active Substance: VALPROIC ACID
  23. DIVALPROEX SODIUM. [Concomitant]
     Active Substance: DIVALPROEX SODIUM
  24. METOPROLOL. [Concomitant]
     Active Substance: METOPROLOL
  25. SODIUM PHOSPHATE [Concomitant]
     Active Substance: SODIUM PHOSPHATE
  26. ACETAMINOPHEN. [Concomitant]
     Active Substance: ACETAMINOPHEN
  27. FIASP 3ML PDS290 [Concomitant]
     Active Substance: INSULIN ASPART
  28. GABAPENTIN. [Concomitant]
     Active Substance: GABAPENTIN
  29. ROSUVASTATIN. [Concomitant]
     Active Substance: ROSUVASTATIN

REACTIONS (2)
  - Nosocomial infection [Recovered/Resolved]
  - Clostridium difficile infection [Recovered/Resolved]
